FAERS Safety Report 22531155 (Version 2)
Quarter: 2023Q2

REPORT INFORMATION
  Report Type: Report from Study
  Country: CA (occurrence: CA)
  Receive Date: 20230607
  Receipt Date: 20230612
  Transmission Date: 20230721
  Serious: Yes (Death, Other)
  Sender: FDA-Public Use
  Company Number: CA-PUMA BIOTECHNOLOGY, LTD.-2023-PUM-CA000898

PATIENT

DRUGS (4)
  1. NERLYNX [Suspect]
     Active Substance: NERATINIB
     Indication: HER2 positive breast cancer
     Dosage: 80 MG, DAILY
     Route: 048
     Dates: start: 20230526
  2. LOPERAMIDE [Concomitant]
     Active Substance: LOPERAMIDE
     Indication: Prophylaxis against diarrhoea
  3. PROCHLORPERAZINE [Concomitant]
     Active Substance: PROCHLORPERAZINE
     Indication: Product used for unknown indication
  4. CAPECITABINE [Concomitant]
     Active Substance: CAPECITABINE
     Indication: Product used for unknown indication

REACTIONS (2)
  - Breast cancer metastatic [Fatal]
  - Product prescribing issue [Unknown]

NARRATIVE: CASE EVENT DATE: 20230531
